FAERS Safety Report 12625001 (Version 3)
Quarter: 2016Q3

REPORT INFORMATION
  Report Type: Report from Study
  Country: US (occurrence: US)
  Receive Date: 20160805
  Receipt Date: 20160819
  Transmission Date: 20161109
  Serious: Yes (Hospitalization, Other)
  Sender: FDA-Public Use
  Company Number: US-GILEAD-2016-0226593

PATIENT
  Age: 69 Year
  Sex: Male

DRUGS (17)
  1. FLUTICASONE W/SALMETEROL [Concomitant]
     Active Substance: FLUTICASONE PROPIONATE\SALMETEROL XINAFOATE
  2. INSULIN LISPRO [Concomitant]
     Active Substance: INSULIN LISPRO
  3. ALLOPURINOL. [Concomitant]
     Active Substance: ALLOPURINOL
  4. OMEPRAZOLE. [Concomitant]
     Active Substance: OMEPRAZOLE
  5. ADCIRCA [Concomitant]
     Active Substance: TADALAFIL
     Dosage: UNK
  6. AMBRISENTAN [Suspect]
     Active Substance: AMBRISENTAN
     Indication: PULMONARY ARTERIAL HYPERTENSION
     Dosage: 10 MG, QD
     Route: 048
  7. ASPIRIN                            /00002701/ [Concomitant]
     Active Substance: ASPIRIN
  8. ROPINIROLE. [Concomitant]
     Active Substance: ROPINIROLE
  9. SEVELAMER [Concomitant]
     Active Substance: SEVELAMER
  10. MIDODRINE [Concomitant]
     Active Substance: MIDODRINE
  11. LEVOFLOXACIN. [Concomitant]
     Active Substance: LEVOFLOXACIN
  12. BUPROPION. [Concomitant]
     Active Substance: BUPROPION
  13. METOPROLOL. [Concomitant]
     Active Substance: METOPROLOL
  14. FERROUS SULFATE. [Concomitant]
     Active Substance: FERROUS SULFATE
  15. LOVASTATIN. [Concomitant]
     Active Substance: LOVASTATIN
  16. MELATONIN [Concomitant]
     Active Substance: MELATONIN
  17. OXYGEN. [Concomitant]
     Active Substance: OXYGEN

REACTIONS (7)
  - Hypotension [Recovered/Resolved]
  - Hyperkalaemia [Unknown]
  - Dehydration [Unknown]
  - Bradycardia [Unknown]
  - Syncope [Recovered/Resolved]
  - Presyncope [Unknown]
  - Fluid overload [Unknown]

NARRATIVE: CASE EVENT DATE: 201607
